FAERS Safety Report 9154015 (Version 1)
Quarter: 2013Q1

REPORT INFORMATION
  Report Type: Report from Study
  Country: FR (occurrence: FR)
  Receive Date: 20130311
  Receipt Date: 20130311
  Transmission Date: 20140127
  Serious: Yes (Other)
  Sender: FDA-Public Use
  Company Number: FR-GENZYME-CLOF-1002536

PATIENT
  Age: 24 Year
  Sex: Male

DRUGS (8)
  1. EVOLTRA [Suspect]
     Indication: ACUTE MYELOID LEUKAEMIA
     Dosage: 59 MG, UNK
     Route: 042
     Dates: start: 20101126, end: 20101130
  2. THYMOGLOBULINE [Suspect]
     Indication: BONE MARROW CONDITIONING REGIMEN
     Dosage: UNK
     Route: 065
     Dates: start: 2010
  3. ARACYTINE [Suspect]
     Indication: ACUTE MYELOID LEUKAEMIA
     Dosage: UNK
     Route: 065
     Dates: start: 2010
  4. ENDOXAN [Suspect]
     Indication: BONE MARROW CONDITIONING REGIMEN
     Dosage: UNK
     Route: 065
     Dates: start: 2010
  5. BUSILVEX [Suspect]
     Indication: BONE MARROW CONDITIONING REGIMEN
     Dosage: UNK
     Route: 065
     Dates: start: 2010
  6. CORTANCYL [Suspect]
     Indication: PRODUCT USED FOR UNKNOWN INDICATION
     Dosage: UNK
     Route: 065
  7. RAMIPRIL [Suspect]
     Indication: PRODUCT USED FOR UNKNOWN INDICATION
     Dosage: UNK
     Route: 065
  8. FANSIDAR [Suspect]
     Indication: PRODUCT USED FOR UNKNOWN INDICATION
     Dosage: UNK
     Route: 065

REACTIONS (9)
  - Acute graft versus host disease in skin [Recovered/Resolved]
  - Metapneumovirus infection [Recovered/Resolved]
  - Neutropenia [Recovered/Resolved]
  - BK virus infection [Unknown]
  - Urinary tract pain [Recovered/Resolved]
  - Haematuria [Recovered/Resolved]
  - Dyspnoea [Recovered/Resolved]
  - Oral lichen planus [Recovered/Resolved]
  - Pneumonia parainfluenzae viral [Recovered/Resolved]
